FAERS Safety Report 4710805-5 (Version None)
Quarter: 2005Q3

REPORT INFORMATION
  Report Type: 
  Country: None (occurrence: None)
  Receive Date: 20050705
  Receipt Date: 20050620
  Transmission Date: 20060218
  Serious: No
  Sender: FDA-Public Use
  Company Number: SAGL-ZLB/05/60/GFR

PATIENT
  Age: 66 Year
  Sex: Male
  Weight: 74 kg

DRUGS (8)
  1. SANDOGLOBULIN [Suspect]
     Indication: HYPOGAMMAGLOBULINAEMIA
     Dosage: 10 G ONCE IV
     Route: 042
     Dates: start: 20050610, end: 20050610
  2. ACERBON (LISINOPRIL) [Concomitant]
  3. TOREMI (TORASEMIDE) [Concomitant]
  4. ENDORAM(IRON) [Concomitant]
  5. PREDNISOLONE [Concomitant]
  6. VIGANTOLETTEN (COLECALCIFEROL) [Concomitant]
  7. HEPARIN [Concomitant]
  8. HAEMOCTIN (FACTOR VIII (ANTIHAEMOPHILIC FACTOR)) [Concomitant]

REACTIONS (4)
  - BLOOD PRESSURE SYSTOLIC INCREASED [None]
  - CHILLS [None]
  - HEART RATE INCREASED [None]
  - NAUSEA [None]
